FAERS Safety Report 4425079-2 (Version None)
Quarter: 2004Q3

REPORT INFORMATION
  Report Type: 
  Country: None (occurrence: None)
  Receive Date: 20040811
  Receipt Date: 20040811
  Transmission Date: 20050211
  Serious: No
  Sender: FDA-Public Use
  Company Number: None

PATIENT
  Sex: Female
  Weight: 139 kg

DRUGS (2)
  1. LAMICTAL [Suspect]
     Indication: BIPOLAR I DISORDER
     Dosage: 50MG  QD  ORAL
     Route: 048
     Dates: start: 20040501, end: 20040729
  2. GEODON [Concomitant]

REACTIONS (1)
  - STEVENS-JOHNSON SYNDROME [None]
